FAERS Safety Report 4780770-3 (Version None)
Quarter: 2005Q3

REPORT INFORMATION
  Report Type: 
  Country: None (occurrence: None)
  Receive Date: 20050921
  Receipt Date: 20050901
  Transmission Date: 20060218
  Serious: Yes (Hospitalization)
  Sender: FDA-Public Use
  Company Number: 2005BH001501

PATIENT
  Age: 66 Year
  Sex: Male

DRUGS (6)
  1. GAMMAGARD S/D [Suspect]
     Indication: POLYNEUROPATHY
     Dosage: 50  MG, EVERY DAY; IV
     Route: 042
     Dates: start: 20050429
  2. ATARAX [Concomitant]
  3. TRANXENE [Concomitant]
  4. APPROVEL [Concomitant]
  5. ESOMEPRAZOLE [Concomitant]
  6. ACETAMINOPHEN W/ PROPOXYPHENE HCL [Concomitant]

REACTIONS (3)
  - ALOPECIA [None]
  - DYSHIDROSIS [None]
  - HYPERKERATOSIS PALMARIS AND PLANTARIS [None]
